FAERS Safety Report 6393024-9 (Version None)
Quarter: 2009Q4

REPORT INFORMATION
  Report Type: 
  Country: None (occurrence: None)
  Receive Date: 20091008
  Receipt Date: 20070709
  Transmission Date: 20100525
  Serious: Yes (Other)
  Sender: FDA-Public Use
  Company Number: US-ASTRAZENECA-2006UW26435

PATIENT
  Age: 20695 Day
  Sex: Male
  Weight: 102.1 kg

DRUGS (10)
  1. SEROQUEL [Suspect]
     Indication: DEPRESSION
     Dosage: 400 MG - 600 MG
     Route: 048
     Dates: end: 20060901
  2. SEROQUEL [Suspect]
     Indication: ANXIETY
     Dosage: 400 MG - 600 MG
     Route: 048
     Dates: end: 20060901
  3. SEROQUEL [Suspect]
     Dosage: 100-600 MG
     Route: 048
     Dates: start: 20041129
  4. SEROQUEL [Suspect]
     Dosage: 100-600 MG
     Route: 048
     Dates: start: 20041129
  5. EFFEXOR XR [Concomitant]
     Dosage: 75-100 MG
  6. ZOLOFT [Concomitant]
     Route: 048
  7. CLONAZEPAM [Concomitant]
     Route: 065
  8. MIRTAZAPINE [Concomitant]
     Route: 048
     Dates: start: 20040212
  9. TRAZODONE [Concomitant]
     Route: 048
     Dates: start: 20040212
  10. RISPERDAL [Concomitant]
     Route: 048
     Dates: start: 20041122

REACTIONS (2)
  - DIABETES MELLITUS [None]
  - DIABETIC NEPHROPATHY [None]
